FAERS Safety Report 18429257 (Version 2)
Quarter: 2020Q4

REPORT INFORMATION
  Report Type: Spontaneous
  Country: GB (occurrence: GB)
  Receive Date: 20201026
  Receipt Date: 20201102
  Transmission Date: 20210114
  Serious: Yes (Hospitalization)
  Sender: FDA-Public Use
  Company Number: NVSC2020GB284372

PATIENT

DRUGS (1)
  1. VOLTAROL [Suspect]
     Active Substance: DICLOFENAC SODIUM
     Indication: PRODUCT USED FOR UNKNOWN INDICATION
     Dosage: AROUND 2014
     Route: 065

REACTIONS (9)
  - Abdominal pain upper [Unknown]
  - Product label issue [Unknown]
  - Abdominal pain [Unknown]
  - Weight decreased [Unknown]
  - Post procedural bile leak [Unknown]
  - Internal haemorrhage [Unknown]
  - Product quality issue [Unknown]
  - Vomiting [Unknown]
  - Gastric ulcer [Unknown]
